FAERS Safety Report 5388938-2 (Version None)
Quarter: 2007Q3

REPORT INFORMATION
  Report Type: 
  Country: None (occurrence: None)
  Receive Date: 20070717
  Receipt Date: 20070706
  Transmission Date: 20080115
  Serious: Yes (Other)
  Sender: FDA-Public Use
  Company Number: PHBS2007BR11632

PATIENT
  Age: 71 Year
  Sex: Male
  Weight: 76 kg

DRUGS (6)
  1. COMTAN [Suspect]
     Indication: PARKINSON'S DISEASE
     Dosage: 200 MG/D
     Route: 048
     Dates: end: 20070705
  2. CARBIDOPA [Concomitant]
     Indication: PARKINSON'S DISEASE
     Dosage: 50 MG, BID
     Route: 065
  3. LEVODOPA [Concomitant]
     Indication: PARKINSON'S DISEASE
     Dosage: 200 MG/D
     Route: 065
  4. SELEGILINE HCL [Concomitant]
     Indication: PARKINSON'S DISEASE
     Dosage: 5 MG, BID
     Route: 048
  5. ENALAPRIL MALEATE [Concomitant]
     Indication: HYPERTENSION
     Dosage: 20 MG, BID
     Route: 048
  6. VITAMIN B-12 [Concomitant]
     Dosage: 50 MG/D

REACTIONS (2)
  - BLOOD PRESSURE INCREASED [None]
  - FEELING HOT [None]
